FAERS Safety Report 10468883 (Version 1)
Quarter: 2014Q3

REPORT INFORMATION
  Report Type: Spontaneous
  Country: US (occurrence: US)
  Receive Date: 20140923
  Receipt Date: 20140923
  Transmission Date: 20150326
  Serious: Yes (Hospitalization)
  Sender: FDA-Public Use
  Company Number: US-UCBSA-2014011838

PATIENT
  Sex: Female

DRUGS (11)
  1. CLONOPIN [Suspect]
     Active Substance: CLONAZEPAM
     Dosage: HIGH DOSAGES
  2. DEPO-PROVERA [Concomitant]
     Active Substance: MEDROXYPROGESTERONE ACETATE
  3. RISPERDAL [Suspect]
     Active Substance: RISPERIDONE
     Dosage: HIGH DOSAGES
  4. KEPPRA [Suspect]
     Active Substance: LEVETIRACETAM
     Dosage: UNK
     Dates: start: 2012, end: 2012
  5. TOPAMAX [Suspect]
     Active Substance: TOPIRAMATE
     Dosage: HIGH DOSAGES
  6. KEPPRA [Suspect]
     Active Substance: LEVETIRACETAM
     Dosage: UNK
     Dates: start: 2012, end: 2012
  7. KEPPRA [Suspect]
     Active Substance: LEVETIRACETAM
     Dosage: UNK
     Dates: start: 2012, end: 2012
  8. ONFI [Concomitant]
     Active Substance: CLOBAZAM
     Dosage: DAILY DOSE: 30 MG
     Dates: start: 201303
  9. LAMICTAL [Suspect]
     Active Substance: LAMOTRIGINE
     Dosage: HIGH DOSAGES
     Dates: start: 2013, end: 201311
  10. CLONOPIN [Suspect]
     Active Substance: CLONAZEPAM
     Dosage: UNK
  11. TOPAMAX [Suspect]
     Active Substance: TOPIRAMATE
     Dosage: UNK

REACTIONS (8)
  - Convulsion [Unknown]
  - Pain [Unknown]
  - Wrong technique in drug usage process [Unknown]
  - Feeling abnormal [Unknown]
  - Apathy [Unknown]
  - Disturbance in attention [Unknown]
  - Drooling [Unknown]
  - Emotional poverty [Unknown]

NARRATIVE: CASE EVENT DATE: 2012
